FAERS Safety Report 16069444 (Version 1)
Quarter: 2019Q1

REPORT INFORMATION
  Report Type: Spontaneous
  Country: US (occurrence: US)
  Receive Date: 20190313
  Receipt Date: 20190313
  Transmission Date: 20190418
  Serious: No
  Sender: FDA-Public Use
  Company Number: US-SA-2019SA064759

PATIENT
  Sex: Female

DRUGS (1)
  1. LANTUS [Suspect]
     Active Substance: INSULIN GLARGINE
     Dosage: 50 U, QD

REACTIONS (6)
  - Product dose omission [Unknown]
  - Contusion [Unknown]
  - Gait disturbance [Unknown]
  - Nerve injury [Unknown]
  - Tendon discomfort [Unknown]
  - Underdose [Unknown]
